FAERS Safety Report 19472296 (Version 1)
Quarter: 2021Q2

REPORT INFORMATION
  Report Type: Spontaneous
  Country: TR (occurrence: TR)
  Receive Date: 20210629
  Receipt Date: 20210629
  Transmission Date: 20210717
  Serious: Yes (Death, Life-Threatening, Hospitalization, Other)
  Sender: FDA-Public Use
  Company Number: TR-LUPIN PHARMACEUTICALS INC.-2021-10391

PATIENT
  Age: 16 Year
  Sex: Male

DRUGS (8)
  1. METOPROLOL. [Suspect]
     Active Substance: METOPROLOL
     Indication: PRODUCT USED FOR UNKNOWN INDICATION
     Dosage: 2 DOSAGE FORM, (PATIENT^S FATHER HAD NOTICED MISSING TWO OF EACH OF HIS DRUGS)
     Route: 065
  2. RAMIPRIL. [Suspect]
     Active Substance: RAMIPRIL
     Indication: PRODUCT USED FOR UNKNOWN INDICATION
     Dosage: 2 DOSAGE FORM, (PATIENT^S FATHER HAD NOTICED MISSING TWO OF EACH OF HIS DRUGS)
     Route: 065
  3. ADRENALINE [Suspect]
     Active Substance: EPINEPHRINE
     Indication: HYPOTENSION
     Dosage: UNK (INFUSION)
     Route: 065
  4. ACETYLSALICYLIC ACID [Suspect]
     Active Substance: ASPIRIN
     Indication: PRODUCT USED FOR UNKNOWN INDICATION
     Dosage: 2 DOSAGE FORM, (PATIENT^S FATHER HAD NOTICED MISSING TWO OF EACH OF HIS DRUGS)
     Route: 065
  5. NORADRENALINE [Suspect]
     Active Substance: NOREPINEPHRINE
     Indication: HYPOTENSION
     Dosage: UNK (INFUSION)
     Route: 065
  6. METHYLENE BLUE. [Suspect]
     Active Substance: METHYLENE BLUE
     Indication: HYPOTENSION
     Dosage: UNK
     Route: 065
  7. HYDROCORTISONE. [Suspect]
     Active Substance: HYDROCORTISONE
     Indication: HYPOTENSION
     Dosage: UNK
     Route: 065
  8. TRANDOLAPRIL AND VERAPAMIL HYDROCHLORIDE [Suspect]
     Active Substance: TRANDOLAPRIL\VERAPAMIL HYDROCHLORIDE
     Indication: PRODUCT USED FOR UNKNOWN INDICATION
     Dosage: 2 DOSAGE FORM, (PATIENT^S FATHER HAD NOTICED MISSING TWO OF EACH OF HIS DRUGS)
     Route: 065

REACTIONS (9)
  - Brain death [Fatal]
  - Loss of consciousness [Unknown]
  - Hypotension [Unknown]
  - Cardio-respiratory arrest [Fatal]
  - Headache [Unknown]
  - Poisoning deliberate [Fatal]
  - Dizziness [Unknown]
  - Cardiac arrest [Unknown]
  - Drug ineffective [Unknown]
